FAERS Safety Report 18819244 (Version 2)
Quarter: 2021Q2

REPORT INFORMATION
  Report Type: Spontaneous
  Country: US (occurrence: US)
  Receive Date: 20210202
  Receipt Date: 20210513
  Transmission Date: 20210717
  Serious: Yes (Death, Other)
  Sender: FDA-Public Use
  Company Number: US-GILEAD-2021-0514091

PATIENT
  Sex: Male

DRUGS (2)
  1. TRUVADA [Suspect]
     Active Substance: EMTRICITABINE\TENOFOVIR DISOPROXIL FUMARATE
     Dosage: 300 G
     Route: 048
     Dates: start: 2012, end: 20190426
  2. TRUVADA [Suspect]
     Active Substance: EMTRICITABINE\TENOFOVIR DISOPROXIL FUMARATE
     Indication: HIV INFECTION
     Dosage: UNK
     Route: 048
     Dates: start: 2002, end: 201904

REACTIONS (6)
  - Tooth loss [Recovered/Resolved]
  - Acute kidney injury [Fatal]
  - Metabolic acidosis [Fatal]
  - Chronic kidney disease [Unknown]
  - Toxic encephalopathy [Fatal]
  - Renal failure [Fatal]

NARRATIVE: CASE EVENT DATE: 2015
